FAERS Safety Report 7326396-9 (Version None)
Quarter: 2011Q1

REPORT INFORMATION
  Report Type: 
  Country: None (occurrence: None)
  Receive Date: 20110302
  Receipt Date: 20110225
  Transmission Date: 20110831
  Serious: Yes (Other)
  Sender: FDA-Public Use
  Company Number: US-BRISTOL-MYERS SQUIBB COMPANY-15570880

PATIENT
  Age: 64 Year
  Sex: Male

DRUGS (9)
  1. TAXOL [Suspect]
     Indication: NON-SMALL CELL LUNG CANCER
     Dates: start: 20101001
  2. CARBOPLATIN [Suspect]
     Indication: NON-SMALL CELL LUNG CANCER
     Dosage: INTER: JAN2011
     Dates: start: 20101001
  3. FOLIC ACID [Concomitant]
  4. PENTOXIFYLLINE [Concomitant]
  5. FENTANYL [Concomitant]
  6. PLAVIX [Suspect]
     Dosage: PLAVIX SINCE 2003 OR 2004 WHICH WAS DISCONTINUED IN JAN2011
     Dates: end: 20110101
  7. ALBUTEROL [Concomitant]
  8. STEROIDS [Concomitant]
  9. NITROGLYCERIN [Concomitant]
     Dosage: NITROGLYCERINE PATCH

REACTIONS (2)
  - SKIN DISCOLOURATION [None]
  - BLUE TOE SYNDROME [None]
